FAERS Safety Report 9264004 (Version 1)
Quarter: 2013Q2

REPORT INFORMATION
  Report Type: Spontaneous
  Country: MX (occurrence: MX)
  Receive Date: 20130430
  Receipt Date: 20130430
  Transmission Date: 20140414
  Serious: Yes (Death, Hospitalization)
  Sender: FDA-Public Use
  Company Number: MX-ACTELION-A-CH2013-82668

PATIENT
  Age: 50 Year
  Sex: Male
  Weight: 65 kg

DRUGS (2)
  1. TRACLEER [Suspect]
     Indication: PULMONARY ARTERIAL HYPERTENSION
     Dosage: 62.5 MG, BID
     Route: 048
     Dates: end: 201303
  2. TRACLEER [Suspect]
     Dosage: 62.5 MG, BID
     Route: 048
     Dates: start: 20130424, end: 20130428

REACTIONS (5)
  - Hereditary haemorrhagic telangiectasia [Fatal]
  - Pulmonary arterial hypertension [Fatal]
  - Haemoptysis [Fatal]
  - Renal failure [Unknown]
  - Blood product transfusion [Unknown]
